FAERS Safety Report 7721622-6 (Version None)
Quarter: 2011Q3

REPORT INFORMATION
  Report Type: 
  Country: None (occurrence: None)
  Receive Date: 20110831
  Receipt Date: 20110714
  Transmission Date: 20111222
  Serious: Yes (Other)
  Sender: FDA-Public Use
  Company Number: GB-ASTRAZENECA-2011SE38274

PATIENT
  Age: 67 Year
  Sex: Female
  Weight: 72.5 kg

DRUGS (10)
  1. SERTRALINE HYDROCHLORIDE [Concomitant]
     Route: 048
  2. CO-DYDRAMOL [Concomitant]
     Dosage: 10/500 TWO TABLETS FOUR TIMES A DAY
     Route: 048
  3. CARBAMAZEPINE [Concomitant]
     Route: 048
  4. LOVAZA [Concomitant]
  5. DIAZEPAM [Concomitant]
  6. VIMOVO [Suspect]
     Indication: BACK PAIN
     Route: 048
     Dates: start: 20110602, end: 20110608
  7. CO-DYDRAMOL [Concomitant]
     Dosage: 10/500 AS REQUIRED
  8. LOVAZA [Concomitant]
  9. SIMAVASTATIN [Concomitant]
     Route: 048
  10. TRAMADOL HYDROCHLORIDE/ACETAMINOPHEN [Concomitant]
     Dates: start: 20110613

REACTIONS (13)
  - DYSPEPSIA [None]
  - DIARRHOEA [None]
  - FAECES PALE [None]
  - ABDOMINAL PAIN UPPER [None]
  - ANAL FISSURE [None]
  - ANAL HAEMORRHAGE [None]
  - ABNORMAL FAECES [None]
  - OEDEMA PERIPHERAL [None]
  - COLD SWEAT [None]
  - EPISTAXIS [None]
  - HAEMATOCHEZIA [None]
  - WHEEZING [None]
  - WEIGHT INCREASED [None]
